FAERS Safety Report 4291418-9 (Version None)
Quarter: 2004Q1

REPORT INFORMATION
  Report Type: 
  Country: None (occurrence: None)
  Receive Date: 20040210
  Receipt Date: 20040210
  Transmission Date: 20041129
  Serious: Yes (Other)
  Sender: FDA-Public Use
  Company Number: None

PATIENT
  Age: 79 Year
  Sex: Female

DRUGS (5)
  1. MAXITROL [Suspect]
     Indication: CATARACT OPERATION
     Dosage: 1GTT Q2H OPHTHALMIC
     Route: 047
     Dates: start: 20031124, end: 20031125
  2. MAXZIDE [Concomitant]
  3. XALATAN [Concomitant]
  4. PILOCARPINE HCL [Concomitant]
  5. LEVOTHYROXINE SODIUM [Concomitant]

REACTIONS (1)
  - DYSPNOEA [None]
